FAERS Safety Report 6178681-4 (Version None)
Quarter: 2009Q2

REPORT INFORMATION
  Report Type: 
  Country: None (occurrence: None)
  Receive Date: 20090430
  Receipt Date: 20090224
  Transmission Date: 20091009
  Serious: Yes (Hospitalization)
  Sender: FDA-Public Use
  Company Number: 2009AP000661

PATIENT
  Age: 28 Year
  Sex: Female

DRUGS (3)
  1. CITALOPRAM HYDROBROMIDE [Suspect]
     Indication: DEPRESSION
     Dosage: 10 MG; QD; PO, 40 MG; QD; PO, 60 MG; QD; PO
     Route: 048
     Dates: start: 20060701
  2. CITALOPRAM HYDROBROMIDE [Suspect]
     Indication: DEPRESSION
     Dosage: 10 MG; QD; PO, 40 MG; QD; PO, 60 MG; QD; PO
     Route: 048
     Dates: start: 20081001
  3. CITALOPRAM HYDROBROMIDE [Suspect]
     Indication: DEPRESSION
     Dosage: 10 MG; QD; PO, 40 MG; QD; PO, 60 MG; QD; PO
     Route: 048
     Dates: start: 20081101

REACTIONS (3)
  - HAEMOLYTIC ANAEMIA [None]
  - PETECHIAE [None]
  - PLATELET COUNT DECREASED [None]
